FAERS Safety Report 8440290-1 (Version None)
Quarter: 2012Q2

REPORT INFORMATION
  Report Type: 
  Country: None (occurrence: None)
  Receive Date: 20120608
  Receipt Date: 20120601
  Transmission Date: 20120825
  Serious: Yes (Hospitalization, Congenital Anomaly, Other)
  Sender: FDA-Public Use
  Company Number: AUR-APL-2012-02538

PATIENT
  Sex: Female
  Weight: 3.24 kg

DRUGS (1)
  1. PAROXETINE HCL [Suspect]
     Indication: DEPRESSION
     Dosage: (45 MG, 1 D), TRANSPLACENTAL
     Route: 064

REACTIONS (12)
  - MECONIUM IN AMNIOTIC FLUID [None]
  - RESPIRATORY DISORDER [None]
  - SECRETION DISCHARGE [None]
  - DRUG WITHDRAWAL SYNDROME NEONATAL [None]
  - FISTULA [None]
  - CEREBRAL HAEMATOMA [None]
  - HYPOGLYCAEMIA NEONATAL [None]
  - UMBILICAL CORD ABNORMALITY [None]
  - URACHAL ABNORMALITY [None]
  - OXYGEN SATURATION ABNORMAL [None]
  - AGITATION NEONATAL [None]
  - CAESAREAN SECTION [None]
